FAERS Safety Report 6557264-8 (Version None)
Quarter: 2010Q1

REPORT INFORMATION
  Report Type: 
  Country: None (occurrence: None)
  Receive Date: 20100129
  Receipt Date: 20100119
  Transmission Date: 20100710
  Serious: Yes (Hospitalization)
  Sender: FDA-Public Use
  Company Number: US-BIOGENIDEC-2008BI029509

PATIENT
  Age: 51 Year
  Sex: Female

DRUGS (3)
  1. AVONEX [Suspect]
     Indication: MULTIPLE SCLEROSIS
     Route: 030
     Dates: start: 20030801
  2. AVONEX [Suspect]
     Route: 030
     Dates: start: 19980701, end: 20030801
  3. AVONEX [Suspect]
     Route: 030
     Dates: start: 20040228

REACTIONS (12)
  - ANXIETY [None]
  - ARRHYTHMIA [None]
  - ATRIAL FLUTTER [None]
  - BACK PAIN [None]
  - CARDIAC ARREST [None]
  - FEELING ABNORMAL [None]
  - HYPOTENSION [None]
  - INFLUENZA LIKE ILLNESS [None]
  - MULTIPLE SCLEROSIS [None]
  - MULTIPLE SCLEROSIS RELAPSE [None]
  - MUSCLE SPASMS [None]
  - SICK SINUS SYNDROME [None]
